FAERS Safety Report 8033382-2 (Version None)
Quarter: 2012Q1

REPORT INFORMATION
  Report Type: 
  Country: None (occurrence: None)
  Receive Date: 20120110
  Receipt Date: 20120102
  Transmission Date: 20120608
  Serious: Yes (Hospitalization)
  Sender: FDA-Public Use
  Company Number: US-PURDUE-USA-2012-0080440

PATIENT
  Sex: Female

DRUGS (2)
  1. BUTRANS [Suspect]
     Dosage: 20 MCG, Q1H
     Route: 062
  2. BUTRANS [Suspect]
     Indication: ANALGESIC THERAPY
     Dosage: 10 MCG, Q1H
     Route: 062

REACTIONS (2)
  - HOSPITALISATION [None]
  - INADEQUATE ANALGESIA [None]
